FAERS Safety Report 6349895-5 (Version None)
Quarter: 2009Q3

REPORT INFORMATION
  Report Type: 
  Country: None (occurrence: None)
  Receive Date: 20090911
  Receipt Date: 20090901
  Transmission Date: 20100115
  Serious: Yes (Other)
  Sender: FDA-Public Use
  Company Number: US-WATSON-2009-07163

PATIENT
  Age: 89 Year
  Sex: Male

DRUGS (1)
  1. POTASSIUM CHLORIDE EXTENDED-RELEASE CAPSULES (WATSON LABORATORIES) [Suspect]
     Indication: BLOOD POTASSIUM DECREASED
     Dosage: 10 MEQ, DAILY
     Route: 048
     Dates: start: 20090101, end: 20090101

REACTIONS (2)
  - CHOKING [None]
  - CYANOSIS [None]
